FAERS Safety Report 8439465 (Version 2)
Quarter: 2013Q1

REPORT INFORMATION
  Report Type: Report from Study
  Country: DE (occurrence: DE)
  Receive Date: 20120302
  Receipt Date: 20130204
  Transmission Date: 20140127
  Serious: Yes (Death, Hospitalization)
  Sender: FDA-Public Use
  Company Number: PHHY2012DE015972

PATIENT
  Age: 55 Year
  Sex: Female
  Weight: 80 kg

DRUGS (5)
  1. ZOLEDRONATE [Suspect]
     Indication: BONE DISORDER
     Dosage: 4 MG, EVERY 4 WEEKS
     Route: 042
     Dates: start: 20110328, end: 20110502
  2. BISOPROLOL [Concomitant]
     Dosage: 5 MG, UNK
  3. TRAMAL [Concomitant]
  4. TORASEMIDE [Concomitant]
     Dosage: 5 MG, QD
  5. TOLVAPTAN [Concomitant]
     Dosage: 15 MG, QD2SDO
     Dates: start: 201108

REACTIONS (15)
  - Neoplasm progression [Fatal]
  - Malignant neoplasm progression [Fatal]
  - Metastases to liver [Fatal]
  - Metastases to central nervous system [Fatal]
  - Metastases to lymph nodes [Fatal]
  - Metastases to lung [Fatal]
  - Cerebellar infarction [Fatal]
  - Gait spastic [Fatal]
  - Eyelid ptosis [Fatal]
  - Heart rate irregular [Fatal]
  - Aphasia [Fatal]
  - Extensor plantar response [Fatal]
  - Hypokalaemia [Fatal]
  - Hyponatraemia [Fatal]
  - General physical health deterioration [Unknown]
